FAERS Safety Report 14061084 (Version 1)
Quarter: 2017Q4

REPORT INFORMATION
  Report Type: Report from Study
  Country: CO (occurrence: CO)
  Receive Date: 20171008
  Receipt Date: 20171008
  Transmission Date: 20180321
  Serious: Yes (Other)
  Sender: FDA-Public Use
  Company Number: CO-AMGEN-COLSL2015112631

PATIENT
  Age: 25 Year
  Sex: Male
  Weight: 95 kg

DRUGS (2)
  1. NPLATE [Suspect]
     Active Substance: ROMIPLOSTIM
     Indication: IMMUNE THROMBOCYTOPENIC PURPURA
     Dosage: 175 MCG, QWK
     Route: 058
     Dates: start: 20141201
  2. NPLATE [Suspect]
     Active Substance: ROMIPLOSTIM
     Dosage: 250 MUG, QWK
     Route: 058
     Dates: end: 20160129

REACTIONS (2)
  - Thrombocytosis [Recovering/Resolving]
  - Platelet count abnormal [Recovering/Resolving]
